FAERS Safety Report 14994712 (Version 1)
Quarter: 2018Q2

REPORT INFORMATION
  Report Type: Spontaneous
  Country: EE (occurrence: EE)
  Receive Date: 20180611
  Receipt Date: 20180611
  Transmission Date: 20180711
  Serious: Yes (Other)
  Sender: FDA-Public Use
  Company Number: EE-BRISTOL-MYERS SQUIBB COMPANY-BMS-2018-051872

PATIENT
  Age: 26 Year
  Sex: Male

DRUGS (1)
  1. ELIQUIS [Suspect]
     Active Substance: APIXABAN
     Indication: EMBOLISM VENOUS
     Dosage: 5 MG, UNK
     Route: 065

REACTIONS (4)
  - Pulmonary embolism [Unknown]
  - Nephrotic syndrome [Unknown]
  - Hypoalbuminaemia [Unknown]
  - Colitis ulcerative [Unknown]
